FAERS Safety Report 18621644 (Version 1)
Quarter: 2020Q4

REPORT INFORMATION
  Report Type: Report from Study
  Country: None (occurrence: US)
  Receive Date: 20201216
  Receipt Date: 20201216
  Transmission Date: 20210114
  Serious: Yes (Other)
  Sender: FDA-Public Use
  Company Number: US-ABBVIE-20K-163-3511020-00

PATIENT
  Age: 74 Year
  Sex: Female
  Weight: 54.48 kg

DRUGS (3)
  1. OMEPRAZOLE. [Concomitant]
     Active Substance: OMEPRAZOLE
     Indication: GASTROOESOPHAGEAL REFLUX DISEASE
  2. HUMIRA [Suspect]
     Active Substance: ADALIMUMAB
     Dosage: CITRATE FREE
     Route: 058
     Dates: start: 20200818
  3. HUMIRA [Suspect]
     Active Substance: ADALIMUMAB
     Indication: RHEUMATOID ARTHRITIS
     Route: 058
     Dates: start: 20200616, end: 20200813

REACTIONS (11)
  - Muscle strain [Not Recovered/Not Resolved]
  - Back pain [Not Recovered/Not Resolved]
  - Loss of personal independence in daily activities [Unknown]
  - Device issue [Unknown]
  - Increased tendency to bruise [Unknown]
  - Off label use [Unknown]
  - Rheumatoid arthritis [Recovering/Resolving]
  - Injection site bruising [Unknown]
  - Gait disturbance [Unknown]
  - Incorrect dose administered [Unknown]
  - Fall [Unknown]

NARRATIVE: CASE EVENT DATE: 2020
